FAERS Safety Report 5821883-4 (Version None)
Quarter: 2008Q3

REPORT INFORMATION
  Report Type: 
  Country: None (occurrence: None)
  Receive Date: 20080722
  Receipt Date: 20080707
  Transmission Date: 20090109
  Serious: Yes (Hospitalization)
  Sender: FDA-Public Use
  Company Number: 14822

PATIENT
  Age: 52 Year
  Sex: Male
  Weight: 58.9676 kg

DRUGS (2)
  1. MORPHINE SULFATE [Suspect]
     Indication: PAIN MANAGEMENT
     Dates: start: 19980101, end: 20080101
  2. BUSPAR [Concomitant]

REACTIONS (4)
  - GRAND MAL CONVULSION [None]
  - HEADACHE [None]
  - PETIT MAL EPILEPSY [None]
  - PNEUMONIA [None]
